FAERS Safety Report 4392695-6 (Version None)
Quarter: 2004Q3

REPORT INFORMATION
  Report Type: 
  Country: None (occurrence: None)
  Receive Date: 20040702
  Receipt Date: 20040323
  Transmission Date: 20050211
  Serious: Yes (Other)
  Sender: FDA-Public Use
  Company Number: 2004UW05595

PATIENT
  Age: 82 Year
  Sex: Female
  Weight: 68.0396 kg

DRUGS (7)
  1. CRESTOR [Suspect]
     Indication: BLOOD CHOLESTEROL INCREASED
     Dosage: 10 MG HS PO; 5 MG PO
     Route: 048
     Dates: start: 20040201
  2. CRESTOR [Suspect]
     Indication: BLOOD CHOLESTEROL INCREASED
     Dosage: 10 MG HS PO; 5 MG PO
     Route: 048
     Dates: start: 20040308
  3. POTASSIUM [Concomitant]
  4. . [Concomitant]
  5. BISOPROLOL [Concomitant]
  6. LOTREL [Concomitant]
  7. BEXTRA [Concomitant]

REACTIONS (4)
  - ARTHRALGIA [None]
  - HYPOAESTHESIA [None]
  - MUSCLE CRAMP [None]
  - PAIN IN EXTREMITY [None]
